FAERS Safety Report 13517724 (Version 2)
Quarter: 2017Q3

REPORT INFORMATION
  Report Type: Report from Study
  Country: CO (occurrence: CO)
  Receive Date: 20170505
  Receipt Date: 20170825
  Transmission Date: 20171127
  Serious: Yes (Death)
  Sender: FDA-Public Use
  Company Number: CO-B.I. PHARMACEUTICALS,INC./RIDGEFIELD-2017-BI-025418

PATIENT
  Sex: Female
  Weight: 58 kg

DRUGS (1)
  1. BIBF 1120 [Suspect]
     Active Substance: NINTEDANIB
     Indication: IDIOPATHIC PULMONARY FIBROSIS
     Route: 048
     Dates: start: 20170220

REACTIONS (4)
  - Oedema peripheral [Fatal]
  - Death [Fatal]
  - Dyspnoea [Fatal]
  - Rash [Fatal]
